FAERS Safety Report 5671528-1 (Version None)
Quarter: 2008Q1

REPORT INFORMATION
  Report Type: 
  Country: None (occurrence: None)
  Receive Date: 20080318
  Receipt Date: 20080221
  Transmission Date: 20080703
  Serious: No
  Sender: FDA-Public Use
  Company Number: US-BOEHRINGER INGELHEIM GMBH, GERMANY-2008-BP-02639BP

PATIENT
  Age: 65 Year
  Sex: Female

DRUGS (4)
  1. ZANTAC 150 [Suspect]
     Indication: DYSPEPSIA
     Route: 048
     Dates: start: 20080204
  2. ZANTAC 150 [Suspect]
  3. PROCHLORPERAZINE [Suspect]
     Indication: NAUSEA
  4. CHEMOTHERAPY [Concomitant]
     Indication: BREAST CANCER

REACTIONS (1)
  - CONSTIPATION [None]
